FAERS Safety Report 5146230-5 (Version None)
Quarter: 2006Q4

REPORT INFORMATION
  Report Type: 
  Country: None (occurrence: None)
  Receive Date: 20061106
  Receipt Date: 20061106
  Transmission Date: 20070319
  Serious: Yes (Hospitalization)
  Sender: FDA-Public Use
  Company Number: None

PATIENT
  Sex: Female
  Weight: 106.7 kg

DRUGS (2)
  1. DAUNORUBICIN HCL [Suspect]
     Dosage: 90 MG
  2. CYTARABINE [Suspect]
     Dosage: 200 MG

REACTIONS (6)
  - BLOOD PRESSURE DECREASED [None]
  - CARDIAC FAILURE [None]
  - DYSPNOEA [None]
  - HYPOTENSION [None]
  - HYPOXIA [None]
  - SEPSIS [None]
